FAERS Safety Report 24685541 (Version 1)
Quarter: 2024Q4

REPORT INFORMATION
  Report Type: Spontaneous
  Country: US (occurrence: US)
  Receive Date: 20241202
  Receipt Date: 20241202
  Transmission Date: 20250115
  Serious: Yes (Hospitalization, Other)
  Sender: SAMSUNG BIOEPIS
  Company Number: US-SAMSUNG BIOEPIS-SB-2024-35550

PATIENT
  Age: 65 Year
  Sex: Male

DRUGS (2)
  1. ADALIMUMAB [Suspect]
     Active Substance: ADALIMUMAB
     Indication: Psoriatic arthropathy
  2. ADALIMUMAB [Suspect]
     Active Substance: ADALIMUMAB
     Indication: Familial mediterranean fever

REACTIONS (6)
  - Pneumonia [Recovered/Resolved]
  - Nephropathy toxic [Recovered/Resolved]
  - Glomerulonephritis [Recovered/Resolved]
  - Secondary amyloidosis [Recovered/Resolved]
  - Drug ineffective for unapproved indication [Unknown]
  - Unintentional use for unapproved indication [Unknown]
